FAERS Safety Report 7539692-7 (Version None)
Quarter: 2011Q2

REPORT INFORMATION
  Report Type: 
  Country: None (occurrence: None)
  Receive Date: 20110610
  Receipt Date: 20110213
  Transmission Date: 20111010
  Serious: No
  Sender: FDA-Public Use
  Company Number: A0913829A

PATIENT
  Sex: Female

DRUGS (1)
  1. NIZATIDINE [Suspect]
     Indication: GASTRIC DISORDER
     Dosage: 150MG UNKNOWN
     Route: 048

REACTIONS (1)
  - THERAPEUTIC RESPONSE DECREASED [None]
